FAERS Safety Report 18825391 (Version 10)
Quarter: 2025Q3

REPORT INFORMATION
  Report Type: Report from Study
  Country: US (occurrence: US)
  Receive Date: 20210202
  Receipt Date: 20250723
  Transmission Date: 20251021
  Serious: Yes (Other)
  Sender: TAKEDA
  Company Number: US-TAKEDA-US202029786

PATIENT
  Age: 63 Year
  Sex: Female

DRUGS (3)
  1. HUMAN IMMUNOGLOBULIN G [Suspect]
     Active Substance: HUMAN IMMUNOGLOBULIN G
     Indication: Primary immunodeficiency syndrome
     Dosage: 30 GRAM, Q4WEEKS
  2. HUMAN IMMUNOGLOBULIN G [Suspect]
     Active Substance: HUMAN IMMUNOGLOBULIN G
  3. HUMAN IMMUNOGLOBULIN G [Suspect]
     Active Substance: HUMAN IMMUNOGLOBULIN G
     Dosage: 30 GRAM, MONTHLY

REACTIONS (16)
  - Sepsis [Unknown]
  - Neuropathy peripheral [Unknown]
  - Cancer in remission [Unknown]
  - Vasomotor rhinitis [Unknown]
  - Product use issue [Unknown]
  - Dust allergy [Unknown]
  - Allergy to plants [Unknown]
  - Neck pain [Unknown]
  - Insurance issue [Unknown]
  - Multiple allergies [Unknown]
  - Amnesia [Unknown]
  - Asthenia [Unknown]
  - Blood creatinine increased [Unknown]
  - Back pain [Unknown]
  - Fatigue [Unknown]
  - Headache [Unknown]

NARRATIVE: CASE EVENT DATE: 20180901
